FAERS Safety Report 4862283-3 (Version None)
Quarter: 2005Q4

REPORT INFORMATION
  Report Type: 
  Country: None (occurrence: None)
  Receive Date: 20051201
  Receipt Date: 20050713
  Transmission Date: 20060501
  Serious: No
  Sender: FDA-Public Use
  Company Number: 2005PV000422

PATIENT
  Age: 54 Year
  Sex: Female
  Weight: 96.6162 kg

DRUGS (28)
  1. BYETTA [Suspect]
     Indication: DIABETES MELLITUS NON-INSULIN-DEPENDENT
     Dosage: 5 MCG;BID;SC
     Route: 058
     Dates: start: 20050629
  2. PREDNISONE [Concomitant]
  3. IMURAN [Concomitant]
  4. ARALEN [Concomitant]
  5. FOLIC ACID [Concomitant]
  6. FEOSOL [Concomitant]
  7. MELATONIN [Concomitant]
  8. ASPIRIN [Concomitant]
  9. PLAVIX [Concomitant]
  10. CYCLOBENZAPRINE HCL [Concomitant]
  11. NEURONTIN [Concomitant]
  12. METOCLOPRAMIDE [Concomitant]
  13. POTASSIUM CHLORIDE [Concomitant]
  14. PRILOSEC [Concomitant]
  15. VIVELLE [Concomitant]
  16. OXYTROL [Concomitant]
  17. LEVOXYL [Concomitant]
  18. PRINZIDE [Concomitant]
  19. FORTEO [Concomitant]
  20. LASIX [Concomitant]
  21. ZETIA [Concomitant]
  22. AMBIEN [Concomitant]
  23. KEPPRA [Concomitant]
  24. ULTRAM [Concomitant]
  25. DURAGESIC-100 [Concomitant]
  26. ALEVE [Concomitant]
  27. HUMALOG [Concomitant]
  28. LANTUS [Concomitant]

REACTIONS (6)
  - ASTHENIA [None]
  - BLOOD GLUCOSE DECREASED [None]
  - BLOOD GLUCOSE INCREASED [None]
  - CONFUSIONAL STATE [None]
  - DECREASED APPETITE [None]
  - FEELING JITTERY [None]
